FAERS Safety Report 6559159-2 (Version None)
Quarter: 2010Q1

REPORT INFORMATION
  Report Type: 
  Country: None (occurrence: None)
  Receive Date: 20100129
  Receipt Date: 20100127
  Transmission Date: 20100710
  Serious: Yes (Hospitalization)
  Sender: FDA-Public Use
  Company Number: US-MERCK-0705USA05364

PATIENT
  Age: 69 Year
  Sex: Female

DRUGS (3)
  1. FOSAMAX [Suspect]
     Indication: OSTEOPOROSIS
     Route: 048
  2. FOSAMAX [Suspect]
     Route: 048
     Dates: start: 20030601, end: 20040601
  3. ZYRTEC [Concomitant]
     Indication: SINUS DISORDER
     Route: 048
     Dates: start: 19980101

REACTIONS (4)
  - ARTHROPATHY [None]
  - HYPERTENSION [None]
  - PAIN IN JAW [None]
  - TOOTH LOSS [None]
